FAERS Safety Report 25351379 (Version 1)
Quarter: 2025Q2

REPORT INFORMATION
  Report Type: Spontaneous
  Country: GB (occurrence: GB)
  Receive Date: 20250523
  Receipt Date: 20250523
  Transmission Date: 20250717
  Serious: Yes (Other)
  Sender: TEVA
  Company Number: None

PATIENT
  Age: 39 Year
  Sex: Female

DRUGS (1)
  1. DOXYCYCLINE [Suspect]
     Active Substance: DOXYCYCLINE
     Indication: Acne
     Route: 065

REACTIONS (4)
  - Hypoglycaemia [Recovering/Resolving]
  - Anxiety [Not Recovered/Not Resolved]
  - Dizziness [Recovering/Resolving]
  - Depersonalisation/derealisation disorder [Recovering/Resolving]
